FAERS Safety Report 5792061-2 (Version None)
Quarter: 2008Q2

REPORT INFORMATION
  Report Type: 
  Country: None (occurrence: None)
  Receive Date: 20080625
  Receipt Date: 20080506
  Transmission Date: 20081010
  Serious: No
  Sender: FDA-Public Use
  Company Number: US-WYE-H04033908

PATIENT
  Age: 80 Year
  Sex: Female
  Weight: 76.73 kg

DRUGS (4)
  1. TORISEL [Suspect]
     Indication: RENAL CELL CARCINOMA
     Dosage: RECEIVED 4 DOSES (25 MG/ 30-60 MIN) FREQUENCY NOT PROVIDED, INTRAVENOUS
     Route: 042
     Dates: start: 20080101
  2. CLONIDINE [Concomitant]
  3. VITAMIN B12 [Concomitant]
  4. VESICARE [Concomitant]

REACTIONS (2)
  - EATING DISORDER [None]
  - MOUTH ULCERATION [None]
